FAERS Safety Report 14945784 (Version 1)
Quarter: 2018Q2

REPORT INFORMATION
  Report Type: Spontaneous
  Country: JP (occurrence: JP)
  Receive Date: 20180529
  Receipt Date: 20180529
  Transmission Date: 20180711
  Serious: Yes (Other)
  Sender: FDA-Public Use
  Company Number: PHHY2018JP005205

PATIENT
  Age: 79 Year
  Sex: Male

DRUGS (1)
  1. DOCETAXEL. [Suspect]
     Active Substance: DOCETAXEL
     Indication: PROSTATE CANCER
     Dosage: UNK
     Route: 065
     Dates: start: 201605

REACTIONS (8)
  - Inflammatory marker increased [Unknown]
  - Bone marrow failure [Unknown]
  - Leukopenia [Unknown]
  - Intestinal ischaemia [Unknown]
  - Abdominal pain [Unknown]
  - Blood pressure decreased [Unknown]
  - Pyrexia [Unknown]
  - Renal disorder [Unknown]
